FAERS Safety Report 11105061 (Version 2)
Quarter: 2015Q4

REPORT INFORMATION
  Report Type: Spontaneous
  Country: US (occurrence: US)
  Receive Date: 20150511
  Receipt Date: 20151209
  Transmission Date: 20160304
  Serious: No
  Sender: FDA-Public Use
  Company Number: US-ELI_LILLY_AND_COMPANY-US201504007539

PATIENT
  Sex: Female

DRUGS (4)
  1. HUMULIN N [Suspect]
     Active Substance: INSULIN HUMAN
     Indication: DIABETES MELLITUS
     Dosage: 1 DF, EACH EVENING
     Route: 065
     Dates: start: 201410
  2. HUMULIN N [Suspect]
     Active Substance: INSULIN HUMAN
     Dosage: 1 DF, EACH EVENING
     Route: 065
     Dates: start: 201410
  3. HUMULIN N [Suspect]
     Active Substance: INSULIN HUMAN
     Dosage: 1 DF, EACH EVENING
     Route: 065
     Dates: start: 201410
  4. LANTUS [Concomitant]
     Active Substance: INSULIN GLARGINE

REACTIONS (4)
  - Visual acuity reduced [Unknown]
  - Wrong technique in product usage process [Unknown]
  - Blood glucose increased [Unknown]
  - Drug dose omission [Unknown]
